FAERS Safety Report 4500875-1 (Version None)
Quarter: 2004Q4

REPORT INFORMATION
  Report Type: 
  Country: None (occurrence: None)
  Receive Date: 20041109
  Receipt Date: 20041026
  Transmission Date: 20050328
  Serious: Yes (Death, Life-Threatening)
  Sender: FDA-Public Use
  Company Number: 209966

PATIENT
  Age: 82 Year
  Sex: Female
  Weight: 69.1 kg

DRUGS (5)
  1. BEVACIZUMAB (BEVACIZUMAB) PWDR + SOLVENT, INFUSION SOLN, 100 MG [Suspect]
     Indication: COLORECTAL CANCER
     Dosage: 7.5 MG/KG, Q3W, INTRAVENOUS
     Route: 042
     Dates: start: 20040318, end: 20040914
  2. OXALIPLATIN (OXALIPLATIN) [Suspect]
     Indication: COLORECTAL CANCER
     Dosage: 85 MG/KG, Q3W, INTRAVENOUS
     Route: 042
     Dates: start: 20040318, end: 20040914
  3. CAPECITABINE (CAPECITABINE) [Suspect]
     Indication: COLORECTAL CANCER
     Dosage: 850 MG/M2, BID, ORAL
     Route: 048
     Dates: start: 20040318, end: 20040914
  4. GEMFIBROZIL [Concomitant]
  5. PANTOPRAZOLE (PANTOPRAZOLE) [Concomitant]

REACTIONS (14)
  - ACTIVATED PARTIAL THROMBOPLASTIN TIME SHORTENED [None]
  - BLOOD CREATINE PHOSPHOKINASE INCREASED [None]
  - BLOOD POTASSIUM DECREASED [None]
  - BLOOD PRESSURE INCREASED [None]
  - CEREBRAL ATHEROSCLEROSIS [None]
  - CEREBROVASCULAR ACCIDENT [None]
  - CONTUSION [None]
  - ELECTROCARDIOGRAM ST SEGMENT DEPRESSION [None]
  - EYE PROSTHESIS USER [None]
  - FALL [None]
  - LABORATORY TEST ABNORMAL [None]
  - SPINAL COLUMN STENOSIS [None]
  - SPONDYLOSIS [None]
  - WHITE BLOOD CELL COUNT INCREASED [None]
